FAERS Safety Report 5584715-8 (Version None)
Quarter: 2008Q1

REPORT INFORMATION
  Report Type: 
  Country: None (occurrence: None)
  Receive Date: 20080108
  Receipt Date: 20071231
  Transmission Date: 20080703
  Serious: Yes (Death)
  Sender: FDA-Public Use
  Company Number: US-MERCK-0801USA00197

PATIENT
  Age: 43 Year
  Sex: Female

DRUGS (7)
  1. ELAVIL [Suspect]
     Route: 048
  2. METOPROLOL [Suspect]
     Route: 048
  3. TRAMADOL HYDROCHLORIDE [Suspect]
     Route: 048
  4. HYDROCODONE BITARTRATE [Suspect]
     Route: 048
  5. ACETAMINOPHEN [Suspect]
     Route: 048
  6. METAXALONE [Suspect]
     Route: 048
  7. HYDRODIURIL [Suspect]
     Route: 048

REACTIONS (2)
  - COMPLETED SUICIDE [None]
  - OVERDOSE [None]
